FAERS Safety Report 8774670 (Version 3)
Quarter: 2012Q4

REPORT INFORMATION
  Report Type: Report from Study
  Country: TR (occurrence: TR)
  Receive Date: 20120910
  Receipt Date: 20121002
  Transmission Date: 20130627
  Serious: Yes (Hospitalization, Other)
  Sender: FDA-Public Use
  Company Number: TR-NOVOPROD-358943

PATIENT
  Age: 66 Year
  Sex: Female
  Weight: 63 kg

DRUGS (2)
  1. LIRAGLUTIDE FLEXPEN [Suspect]
     Indication: TYPE 2 DIABETES MELLITUS
     Dosage: 1.8 mg, qd
     Route: 058
     Dates: start: 20120220, end: 20120827
  2. NOVOMIX 30 [Concomitant]
     Indication: DIABETES MELLITUS
     Dosage: 46 U, qd
     Dates: start: 20120906

REACTIONS (3)
  - Pancreatic pseudocyst [Not Recovered/Not Resolved]
  - Pancreatic pseudocyst [Not Recovered/Not Resolved]
  - Pancreatic pseudocyst [Not Recovered/Not Resolved]
